FAERS Safety Report 5594506-X (Version None)
Quarter: 2008Q1

REPORT INFORMATION
  Report Type: 
  Country: None (occurrence: None)
  Receive Date: 20080117
  Receipt Date: 20080116
  Transmission Date: 20080703
  Serious: Yes (Hospitalization, Other)
  Sender: FDA-Public Use
  Company Number: DEWYE430816FEB05

PATIENT
  Sex: Male
  Weight: 72 kg

DRUGS (7)
  1. TACROLIMUS [Suspect]
     Indication: PROPHYLAXIS AGAINST TRANSPLANT REJECTION
     Route: 048
     Dates: start: 20050211, end: 20050211
  2. TACROLIMUS [Suspect]
     Route: 048
     Dates: start: 20050212, end: 20050212
  3. TACROLIMUS [Suspect]
     Dates: start: 20050213, end: 20050214
  4. TACROLIMUS [Suspect]
     Dates: start: 20050215, end: 20050215
  5. TACROLIMUS [Suspect]
     Route: 048
     Dates: start: 20050216, end: 20050216
  6. GLUCOCORTICOIDS [Concomitant]
     Indication: PROPHYLAXIS AGAINST TRANSPLANT REJECTION
     Dosage: UNKNOWN
     Route: 048
     Dates: start: 20050211
  7. MYCOPHENOLATE MOFETIL [Concomitant]
     Indication: PROPHYLAXIS AGAINST TRANSPLANT REJECTION
     Dosage: UNKNOWN
     Route: 048
     Dates: start: 20050211

REACTIONS (1)
  - RENAL IMPAIRMENT [None]
